FAERS Safety Report 8155826-8 (Version None)
Quarter: 2012Q1

REPORT INFORMATION
  Report Type: 
  Country: None (occurrence: None)
  Receive Date: 20120215
  Receipt Date: 20120201
  Transmission Date: 20120608
  Serious: Yes (Other)
  Sender: FDA-Public Use
  Company Number: TCI2011A04169

PATIENT
  Age: 82 Year
  Sex: Male

DRUGS (8)
  1. ACTOS [Suspect]
     Indication: DIABETES MELLITUS
     Dosage: 15; 30 MG (15 MG, 1 D), PER ORAL
     Route: 048
     Dates: start: 20071011, end: 20080107
  2. ACTOS [Suspect]
     Indication: DIABETES MELLITUS
     Dosage: 15; 30 MG (15 MG, 1 D), PER ORAL
     Route: 048
     Dates: start: 20080108, end: 20110101
  3. PURSENID (SENNOSIDE A+B CALCIUM) [Concomitant]
  4. AMARYL [Concomitant]
  5. VOLTAREN [Concomitant]
  6. OLMESARTAN MEDOXOMIL [Concomitant]
  7. LENDORM [Concomitant]
  8. TSUMURA BAKUMONDOUTO (HERVAL EXTRACT NOS) [Concomitant]

REACTIONS (3)
  - BLADDER NEOPLASM [None]
  - HAEMATURIA [None]
  - COLONIC POLYP [None]
